FAERS Safety Report 25743569 (Version 2)
Quarter: 2025Q3

REPORT INFORMATION
  Report Type: Spontaneous
  Country: US (occurrence: US)
  Receive Date: 20250831
  Receipt Date: 20250918
  Transmission Date: 20251020
  Serious: No
  Sender: ASTELLAS
  Company Number: US-ASTELLAS-2025-AER-031084

PATIENT
  Sex: Male

DRUGS (1)
  1. VYLOY [Suspect]
     Active Substance: ZOLBETUXIMAB-CLZB
     Indication: Product used for unknown indication
     Route: 065
     Dates: start: 20250529

REACTIONS (1)
  - Nausea [Recovered/Resolved]

NARRATIVE: CASE EVENT DATE: 20250529
